FAERS Safety Report 17883343 (Version 1)
Quarter: 2020Q2

REPORT INFORMATION
  Report Type: Spontaneous
  Country: GB (occurrence: GB)
  Receive Date: 20200611
  Receipt Date: 20200611
  Transmission Date: 20200714
  Serious: Yes (Other)
  Sender: FDA-Public Use
  Company Number: GB-SA-2020SA147666

PATIENT

DRUGS (2)
  1. PIRITON [Concomitant]
     Active Substance: CHLORPHENIRAMINE MALEATE
  2. DUPIXENT [Suspect]
     Active Substance: DUPILUMAB
     Indication: ECZEMA
     Dosage: 200 MG, QOW
     Route: 051
     Dates: start: 20200227

REACTIONS (3)
  - Inflammation [Not Recovered/Not Resolved]
  - Product use issue [Unknown]
  - Erythema [Not Recovered/Not Resolved]

NARRATIVE: CASE EVENT DATE: 20200227
